FAERS Safety Report 7986137-9 (Version None)
Quarter: 2011Q4

REPORT INFORMATION
  Report Type: 
  Country: None (occurrence: None)
  Receive Date: 20111216
  Receipt Date: 20111213
  Transmission Date: 20120403
  Serious: Yes (Other)
  Sender: FDA-Public Use
  Company Number: US-PFIZER INC-2011304258

PATIENT
  Sex: Female
  Weight: 66.667 kg

DRUGS (3)
  1. CHANTIX [Suspect]
     Dosage: 1 MG, 2X/DAY
     Route: 048
     Dates: start: 20110101
  2. CHANTIX [Suspect]
     Indication: SMOKING CESSATION THERAPY
     Dosage: 0.5 MG, DAILY
     Route: 048
     Dates: start: 20111101, end: 20110101
  3. PAXIL [Concomitant]
     Indication: ANXIETY
     Dosage: 5 MG, DAILY
     Route: 048

REACTIONS (3)
  - DIABETES MELLITUS [None]
  - SWELLING FACE [None]
  - STOMATITIS [None]
